FAERS Safety Report 9408531 (Version 2)
Quarter: 2013Q3

REPORT INFORMATION
  Report Type: Spontaneous
  Country: US (occurrence: None)
  Receive Date: 20130716
  Receipt Date: 20130718
  Transmission Date: 20140515
  Serious: Yes (Other)
  Sender: FDA-Public Use
  Company Number: JPI-P-033406

PATIENT
  Age: 65 Year
  Sex: Female
  Weight: 73.03 kg

DRUGS (2)
  1. XYREM [Suspect]
     Indication: CATAPLEXY
     Route: 048
     Dates: start: 20130128, end: 2013
  2. PAROXETINE HYDROCHLORIDE [Concomitant]

REACTIONS (1)
  - Anal cancer [None]
